FAERS Safety Report 21987517 (Version 2)
Quarter: 2023Q1

REPORT INFORMATION
  Report Type: Spontaneous
  Country: JP (occurrence: JP)
  Receive Date: 20230214
  Receipt Date: 20230306
  Transmission Date: 20230418
  Serious: Yes (Hospitalization)
  Sender: FDA-Public Use
  Company Number: JP-DSJP-DSJ-2023-102065

PATIENT
  Age: 46 Year
  Sex: Female

DRUGS (4)
  1. DENOSUMAB [Suspect]
     Active Substance: DENOSUMAB
     Indication: Breast cancer
     Dosage: 120 MG, ONCE EVERY 4 WK
     Route: 058
     Dates: start: 20110607, end: 20160309
  2. FLUOROURACIL [Concomitant]
     Active Substance: FLUOROURACIL
     Indication: Adjuvant therapy
     Dosage: UNK
     Route: 065
     Dates: start: 20110607
  3. EPIRUBICIN [Concomitant]
     Active Substance: EPIRUBICIN
     Indication: Adjuvant therapy
     Dosage: UNK
     Route: 065
     Dates: start: 20110607
  4. CYCLOPHOSPHAMIDE [Concomitant]
     Active Substance: CYCLOPHOSPHAMIDE
     Indication: Adjuvant therapy
     Dosage: UNK
     Route: 065
     Dates: start: 20110607

REACTIONS (2)
  - Atypical femur fracture [Recovering/Resolving]
  - Fall [Recovering/Resolving]

NARRATIVE: CASE EVENT DATE: 20160821
